FAERS Safety Report 9641282 (Version 1)
Quarter: 2013Q4

REPORT INFORMATION
  Report Type: Spontaneous
  Country: US (occurrence: None)
  Receive Date: 20131022
  Receipt Date: 20131022
  Transmission Date: 20140711
  Serious: Yes (Congenital Anomaly)
  Sender: FDA-Public Use
  Company Number: None

PATIENT
  Age: 27 Year
  Sex: Female
  Weight: 68.2 kg

DRUGS (3)
  1. PHENOBARBITAL [Suspect]
     Indication: EPILEPSY
     Dosage: 2 TABS
     Route: 048
  2. CARBAMAZEPINE [Concomitant]
  3. LEVETIRACETAM [Concomitant]

REACTIONS (3)
  - Cleft lip [None]
  - Cleft palate [None]
  - Maternal drugs affecting foetus [None]
